FAERS Safety Report 14822530 (Version 1)
Quarter: 2018Q2

REPORT INFORMATION
  Report Type: Spontaneous
  Country: FR (occurrence: FR)
  Receive Date: 20180427
  Receipt Date: 20180427
  Transmission Date: 20180711
  Serious: Yes (Hospitalization)
  Sender: FDA-Public Use
  Company Number: FR-BAUSCH-BL-2018-012078

PATIENT
  Age: 26 Year
  Sex: Female

DRUGS (4)
  1. SPIRAMYCIN [Suspect]
     Active Substance: SPIRAMYCIN
     Indication: TOOTHACHE
     Route: 048
     Dates: start: 20180328
  2. METRONIDAZOLE. [Suspect]
     Active Substance: METRONIDAZOLE
     Indication: TOOTHACHE
     Route: 048
     Dates: start: 20180328, end: 20180328
  3. RIFAMYCIN [Suspect]
     Active Substance: RIFAMYCIN
     Indication: TOOTHACHE
     Route: 048
     Dates: start: 20180328, end: 20180328
  4. NIFLURIL (NIFLUMIC ACID) [Suspect]
     Active Substance: NIFLUMIC ACID
     Indication: TOOTHACHE
     Route: 048
     Dates: start: 20180328, end: 20180328

REACTIONS (3)
  - Anaphylactic shock [Recovered/Resolved]
  - Hypotension [Recovered/Resolved]
  - Urticaria [Recovered/Resolved]

NARRATIVE: CASE EVENT DATE: 20180328
